FAERS Safety Report 5743151-1 (Version None)
Quarter: 2008Q2

REPORT INFORMATION
  Report Type: 
  Country: None (occurrence: None)
  Receive Date: 20080519
  Receipt Date: 20080515
  Transmission Date: 20081010
  Serious: Yes (Hospitalization)
  Sender: FDA-Public Use
  Company Number: US-BOEHRINGER INGELHEIM GMBH, GERMANY-2008-BP-04857BP

PATIENT
  Age: 56 Year
  Sex: Male

DRUGS (11)
  1. SPIRIVA [Suspect]
     Indication: EMPHYSEMA
     Route: 055
  2. MECLIZINE [Concomitant]
  3. NASONEX [Concomitant]
  4. COMBIVENT [Concomitant]
  5. FOCUS FACTOR [Concomitant]
  6. VITAPLEX [Concomitant]
  7. BENZONATATE [Concomitant]
  8. COREG [Concomitant]
  9. FLOVENT [Concomitant]
  10. FOLIC ACID [Concomitant]
  11. KEPPRA [Concomitant]

REACTIONS (2)
  - CONVULSION [None]
  - DEHYDRATION [None]
